FAERS Safety Report 6099030-6 (Version None)
Quarter: 2009Q1

REPORT INFORMATION
  Report Type: 
  Country: None (occurrence: None)
  Receive Date: 20090302
  Receipt Date: 20090218
  Transmission Date: 20090719
  Serious: Yes (Other)
  Sender: FDA-Public Use
  Company Number: US-PFIZER INC-2009160395

PATIENT
  Sex: Male
  Weight: 86.182 kg

DRUGS (6)
  1. DEPO-MEDROL [Suspect]
     Indication: SINUSITIS
     Dosage: 400 MG, 1X/DAY
     Route: 030
     Dates: start: 20090120, end: 20090120
  2. DEPO-MEDROL [Suspect]
     Indication: NASAL CONGESTION
  3. CLARITIN [Concomitant]
  4. LEVAQUIN [Concomitant]
  5. AUGMENTIN [Concomitant]
  6. VERAMYST [Concomitant]
     Route: 045

REACTIONS (2)
  - OVERDOSE [None]
  - PAIN [None]
